FAERS Safety Report 5313275-1 (Version None)
Quarter: 2007Q1

REPORT INFORMATION
  Report Type: 
  Country: None (occurrence: None)
  Receive Date: 20070201
  Receipt Date: 20060123
  Transmission Date: 20070707
  Serious: No
  Sender: FDA-Public Use
  Company Number: 06P-163-0323053-00

PATIENT
  Age: 18 Year
  Sex: Male

DRUGS (2)
  1. DEPACON [Suspect]
     Indication: CONVULSION
     Dates: start: 20060101, end: 20060101
  2. PHENYTOIN SODIUM [Concomitant]

REACTIONS (3)
  - AGITATION [None]
  - HALLUCINATION [None]
  - RASH [None]
